FAERS Safety Report 15327588 (Version 2)
Quarter: 2018Q3

REPORT INFORMATION
  Report Type: Spontaneous
  Country: RS (occurrence: RS)
  Receive Date: 20180828
  Receipt Date: 20180921
  Transmission Date: 20181010
  Serious: Yes (Other)
  Sender: FDA-Public Use
  Company Number: RS-SHIRE-RS201832979

PATIENT

DRUGS (2)
  1. ELAPRASE [Suspect]
     Active Substance: IDURSULFASE
     Indication: MUCOPOLYSACCHARIDOSIS II
     Dosage: 0.5 MG/KG, 1X/WEEK
     Route: 042
     Dates: start: 20160527, end: 20180823
  2. ELAPRASE [Suspect]
     Active Substance: IDURSULFASE
     Dosage: 0.5 MG/KG, 1X/WEEK
     Route: 042
     Dates: start: 20170823, end: 20170823

REACTIONS (2)
  - Pain in extremity [Unknown]
  - Carpal tunnel syndrome [Not Recovered/Not Resolved]

NARRATIVE: CASE EVENT DATE: 20170823
